FAERS Safety Report 9009758 (Version 3)
Quarter: 2014Q1

REPORT INFORMATION
  Report Type: Spontaneous
  Country: JP (occurrence: JP)
  Receive Date: 20130110
  Receipt Date: 20140131
  Transmission Date: 20141002
  Serious: Yes (Life-Threatening, Other)
  Sender: FDA-Public Use
  Company Number: JP-ROCHE-1148217

PATIENT
  Age: 73 Year
  Sex: Male

DRUGS (12)
  1. AVASTIN [Suspect]
     Indication: COLON CANCER METASTATIC
     Dosage: LAST DOSE PRIOR TO EVENT:04/JAN/2012
     Route: 041
     Dates: start: 20111220
  2. SEROTONE [Suspect]
     Indication: PROPHYLAXIS
     Route: 042
     Dates: start: 20111101, end: 20120104
  3. LEVOFOLINATE [Concomitant]
     Indication: COLON CANCER METASTATIC
     Route: 041
     Dates: start: 20111101, end: 20120104
  4. 5-FU [Concomitant]
     Indication: COLON CANCER METASTATIC
     Route: 040
     Dates: start: 20111101, end: 20120104
  5. 5-FU [Concomitant]
     Route: 041
     Dates: start: 20111101, end: 20120104
  6. ELPLAT [Concomitant]
     Indication: COLON CANCER RECURRENT
     Route: 041
     Dates: start: 20111101, end: 20120104
  7. ALINAMIN F [Concomitant]
     Indication: POSTOPERATIVE CARE
     Route: 048
     Dates: start: 200512
  8. EPADEL [Concomitant]
     Indication: HYPERLIPIDAEMIA
     Route: 048
     Dates: start: 20080823
  9. TAKEPRON [Concomitant]
     Indication: PROPHYLAXIS
     Route: 048
     Dates: start: 20080910
  10. DECADRON [Concomitant]
     Indication: PROPHYLAXIS
     Route: 042
     Dates: start: 20111101, end: 20120104
  11. PREDNISOLONE [Concomitant]
     Indication: PROPHYLAXIS
     Route: 048
     Dates: start: 20111101, end: 20120204
  12. IRINOTECAN HYDROCHLORIDE [Concomitant]

REACTIONS (8)
  - Oesophageal perforation [Recovered/Resolved with Sequelae]
  - Oesophageal fistula [Recovered/Resolved with Sequelae]
  - Vomiting [Unknown]
  - Meningitis [Unknown]
  - Gastrooesophageal reflux disease [Unknown]
  - Hydrocephalus [Unknown]
  - Decreased appetite [Unknown]
  - Nausea [Unknown]
